FAERS Safety Report 17076304 (Version 2)
Quarter: 2019Q4

REPORT INFORMATION
  Report Type: Spontaneous
  Country: JP (occurrence: JP)
  Receive Date: 20191126
  Receipt Date: 20191212
  Transmission Date: 20200122
  Serious: Yes (Hospitalization, Other)
  Sender: FDA-Public Use
  Company Number: JP-SA-2019SA322976

PATIENT
  Age: 83 Year
  Sex: Female
  Weight: 45 kg

DRUGS (2)
  1. INDAPAMIDE. [Suspect]
     Active Substance: INDAPAMIDE
     Indication: HYPERTENSION
     Dosage: 1 MG, QD
     Route: 048
     Dates: start: 200210
  2. CANDESARTAN. [Concomitant]
     Active Substance: CANDESARTAN
     Indication: HYPERTENSION
     Dosage: 4 MG, QD
     Route: 065
     Dates: start: 200210

REACTIONS (24)
  - Electrolyte imbalance [Unknown]
  - Muscular weakness [Unknown]
  - Electrocardiogram T wave amplitude decreased [Unknown]
  - Somnolence [Unknown]
  - Altered state of consciousness [Recovered/Resolved]
  - Facial paralysis [Unknown]
  - Incoherent [Unknown]
  - Eye movement disorder [Unknown]
  - Asthenia [Unknown]
  - Nausea [Unknown]
  - Cerebral infarction [Unknown]
  - Hypokalaemia [Recovered/Resolved]
  - Metabolic acidosis [Unknown]
  - Renin increased [Unknown]
  - Decreased appetite [Unknown]
  - Hyponatraemia [Recovered/Resolved]
  - Hypoacusis [Unknown]
  - Ventricular dysfunction [Unknown]
  - Urine osmolarity increased [Recovered/Resolved]
  - Lacunar infarction [Unknown]
  - Fall [Unknown]
  - Gait disturbance [Unknown]
  - Vomiting [Unknown]
  - Hypotension [Unknown]
